FAERS Safety Report 9682893 (Version 1)
Quarter: 2013Q4

REPORT INFORMATION
  Report Type: Spontaneous
  Country: FR (occurrence: FR)
  Receive Date: 20131112
  Receipt Date: 20131112
  Transmission Date: 20140711
  Serious: Yes (Other)
  Sender: FDA-Public Use
  Company Number: FR-ASTELLAS-2013EU009662

PATIENT
  Age: 1 Year
  Sex: Female

DRUGS (6)
  1. TACROLIMUS SYSTEMIC [Suspect]
     Indication: LIVER TRANSPLANT
     Dosage: UNK
     Route: 048
  2. BASILIXIMAB [Suspect]
     Indication: IMMUNOSUPPRESSION
     Dosage: UNK
     Route: 065
  3. MYCOPHENOLATE MOFETIL [Suspect]
     Indication: IMMUNOSUPPRESSION
     Dosage: UNK
     Route: 065
  4. PREDNISONE [Suspect]
     Indication: IMMUNOSUPPRESSION
     Dosage: UNK
     Route: 065
  5. VALGANCICLOVIR [Suspect]
     Indication: ANTIVIRAL PROPHYLAXIS
     Dosage: UNK
     Route: 065
  6. RITUXIMAB [Suspect]
     Indication: EPSTEIN-BARR VIRAEMIA
     Dosage: UNK
     Route: 065

REACTIONS (7)
  - Epstein-Barr viraemia [Recovered/Resolved]
  - Post transplant lymphoproliferative disorder [Unknown]
  - Pyrexia [Unknown]
  - Growth retardation [Unknown]
  - Anaemia [Unknown]
  - Leukopenia [Unknown]
  - Smooth muscle cell neoplasm [Unknown]
